FAERS Safety Report 11010721 (Version 1)
Quarter: 2015Q2

REPORT INFORMATION
  Report Type: Spontaneous
  Country: US (occurrence: None)
  Receive Date: 20150409
  Receipt Date: 20150409
  Transmission Date: 20150821
  Serious: Yes (Death)
  Sender: FDA-Public Use
  Company Number: None

PATIENT
  Age: 72 Year
  Sex: Female
  Weight: 74.39 kg

DRUGS (1)
  1. NAMENDA XR [Suspect]
     Active Substance: MEMANTINE HYDROCHLORIDE
     Indication: DEMENTIA ALZHEIMER^S TYPE
     Dosage: 21 ?ONCE DAILY?TAKEN BY MOUTH
     Route: 048
     Dates: start: 20150205, end: 20150309

REACTIONS (11)
  - Speech disorder [None]
  - Cognitive disorder [None]
  - Dyspnoea [None]
  - Fatigue [None]
  - Poor quality sleep [None]
  - Insomnia [None]
  - Constipation [None]
  - Incontinence [None]
  - Confusional state [None]
  - Headache [None]
  - Activities of daily living impaired [None]

NARRATIVE: CASE EVENT DATE: 20150328
